FAERS Safety Report 10174979 (Version 2)
Quarter: 2014Q2

REPORT INFORMATION
  Report Type: Report from Study
  Country: CA (occurrence: CA)
  Receive Date: 20140515
  Receipt Date: 20140524
  Transmission Date: 20141212
  Serious: Yes (Other)
  Sender: FDA-Public Use
  Company Number: PHHY2014CA058971

PATIENT
  Age: 66 Year
  Sex: Female

DRUGS (3)
  1. ACLASTA [Suspect]
     Indication: OSTEOPOROSIS
     Dosage: UNK
     Route: 042
     Dates: start: 20110307
  2. ACLASTA [Suspect]
     Dosage: UNK
     Route: 042
     Dates: start: 20120412
  3. ACLASTA [Suspect]
     Dosage: UNK
     Route: 042
     Dates: start: 20140422

REACTIONS (2)
  - Rib fracture [Unknown]
  - Bone density decreased [Unknown]
